FAERS Safety Report 6728496-0 (Version None)
Quarter: 2010Q2

REPORT INFORMATION
  Report Type: 
  Country: None (occurrence: None)
  Receive Date: 20100517
  Receipt Date: 20100510
  Transmission Date: 20101027
  Serious: Yes (Hospitalization)
  Sender: FDA-Public Use
  Company Number: BE-PFIZER INC-2009308333

PATIENT
  Age: 58 Year
  Sex: Female
  Weight: 68 kg

DRUGS (4)
  1. CHAMPIX [Suspect]
     Indication: SMOKING CESSATION THERAPY
     Dosage: UNK
     Route: 048
     Dates: start: 20091031, end: 20091117
  2. KREDEX [Concomitant]
     Dosage: 25 MG, 1X/DAY
     Route: 048
     Dates: start: 20050101
  3. PANTOPRAZOLE [Concomitant]
     Dosage: UNK
     Route: 048
  4. ALDACTAZINE [Concomitant]
     Dosage: UNK
     Route: 048
     Dates: start: 20090519

REACTIONS (5)
  - AMNESIA [None]
  - CONFUSIONAL STATE [None]
  - CRYING [None]
  - DISORIENTATION [None]
  - HEADACHE [None]
